FAERS Safety Report 8605527-4 (Version None)
Quarter: 2012Q3

REPORT INFORMATION
  Report Type: 
  Country: None (occurrence: None)
  Receive Date: 20120820
  Receipt Date: 20120813
  Transmission Date: 20120928
  Serious: Yes (Death)
  Sender: FDA-Public Use
  Company Number: US-INCYTE CORPORATION-2012IN001512

PATIENT
  Sex: Male

DRUGS (13)
  1. LUNESTA [Concomitant]
  2. JAKAFI [Suspect]
     Indication: MYELOFIBROSIS
     Dosage: 10 MG, BID
     Route: 048
  3. PREDNISONE TAB [Concomitant]
  4. LISINOPRIL [Concomitant]
  5. PERCOCET [Concomitant]
  6. PRAVASTATIN [Concomitant]
  7. NAPROSYN [Concomitant]
  8. METOPROLOL TARTRATE [Concomitant]
  9. ASPIRIN [Concomitant]
  10. ZOFRAN [Concomitant]
  11. NITROGLYCERIN [Concomitant]
  12. HUMULIN R [Concomitant]
  13. GLYBURIDE [Concomitant]

REACTIONS (1)
  - MYOCARDIAL INFARCTION [None]
